FAERS Safety Report 4771485-6 (Version None)
Quarter: 2005Q3

REPORT INFORMATION
  Report Type: 
  Country: None (occurrence: None)
  Receive Date: 20050914
  Receipt Date: 20050914
  Transmission Date: 20060218
  Serious: No
  Sender: FDA-Public Use
  Company Number: None

PATIENT
  Age: 60 Year
  Sex: Female
  Weight: 63.5036 kg

DRUGS (1)
  1. LEVAQUIN [Suspect]
     Indication: SINUSITIS
     Dosage: 750 MG -1 DAILY

REACTIONS (6)
  - ANXIETY [None]
  - ARTHRALGIA [None]
  - FATIGUE [None]
  - HEART RATE IRREGULAR [None]
  - INSOMNIA [None]
  - NERVOUSNESS [None]
